FAERS Safety Report 7108497-3 (Version None)
Quarter: 2010Q4

REPORT INFORMATION
  Report Type: 
  Country: None (occurrence: None)
  Receive Date: 20101117
  Receipt Date: 20100816
  Transmission Date: 20110411
  Serious: Yes (Life-Threatening, Disabling)
  Sender: FDA-Public Use
  Company Number: A0861050A

PATIENT
  Age: 67 Year
  Sex: Male

DRUGS (4)
  1. VOTRIENT [Suspect]
     Route: 048
     Dates: start: 20100423, end: 20100526
  2. UNKNOWN MEDICATION [Concomitant]
  3. LASIX [Concomitant]
  4. UNKNOWN MEDICATION [Concomitant]
     Indication: HYPERTENSION

REACTIONS (1)
  - BLOOD PRESSURE INCREASED [None]
